FAERS Safety Report 13451535 (Version 1)
Quarter: 2017Q2

REPORT INFORMATION
  Report Type: Spontaneous
  Country: US (occurrence: US)
  Receive Date: 20170418
  Receipt Date: 20170418
  Transmission Date: 20170830
  Serious: No
  Sender: FDA-Public Use
  Company Number: US-LUPIN PHARMACEUTICALS INC.-E2B_00007303

PATIENT
  Age: 19 Year
  Sex: Female
  Weight: 72.58 kg

DRUGS (1)
  1. MY WAY [Suspect]
     Active Substance: LEVONORGESTREL
     Indication: CONTRACEPTION
     Dosage: 1 TABLET ONCE A DAY,
     Route: 048
     Dates: start: 20160129, end: 20160129

REACTIONS (4)
  - Metrorrhagia [Recovered/Resolved]
  - Menstruation delayed [Unknown]
  - Headache [Unknown]
  - Nausea [Unknown]

NARRATIVE: CASE EVENT DATE: 20160202
